FAERS Safety Report 25464452 (Version 1)
Quarter: 2025Q2

REPORT INFORMATION
  Report Type: Spontaneous
  Country: FR (occurrence: FR)
  Receive Date: 20250621
  Receipt Date: 20250621
  Transmission Date: 20250717
  Serious: Yes (Death, Hospitalization)
  Sender: UCB
  Company Number: None

PATIENT
  Age: 51 Year
  Sex: Male
  Weight: 58.7 kg

DRUGS (12)
  1. KEPPRA [Suspect]
     Active Substance: LEVETIRACETAM
     Indication: Epilepsy
     Dosage: 1000 MG MORNING AND EVENING
     Route: 048
     Dates: start: 2009, end: 20250528
  2. LOVENOX [Concomitant]
     Active Substance: ENOXAPARIN SODIUM
     Indication: Thrombosis prophylaxis
     Dosage: EVENING
     Route: 058
     Dates: start: 20250508, end: 20250526
  3. AMLODIPINE BESYLATE [Concomitant]
     Active Substance: AMLODIPINE BESYLATE
     Indication: Hypertension
     Dosage: MORNING
     Route: 048
     Dates: end: 20250526
  4. CETIRIZINE HYDROCHLORIDE [Concomitant]
     Active Substance: CETIRIZINE HYDROCHLORIDE
     Indication: Pruritus
     Dosage: EVENING
     Route: 048
     Dates: end: 20250528
  5. ACETAMINOPHEN [Concomitant]
     Active Substance: ACETAMINOPHEN
     Indication: Pain
     Dosage: 1000 MG MORNING, NOON AND EVENING
     Route: 048
     Dates: start: 20250510, end: 20250526
  6. SKENAN [Concomitant]
     Active Substance: MORPHINE SULFATE
     Indication: Pain
     Dosage: 10 MG MORNING AND EVENING
     Route: 048
     Dates: start: 20250511, end: 20250527
  7. AMOXICILLIN [Concomitant]
     Active Substance: AMOXICILLIN
     Indication: Pneumonia
     Dosage: 1 G MORNING, NOON AND EVENING
     Route: 048
     Dates: start: 20250516, end: 20250521
  8. ALFUZOSIN [Concomitant]
     Active Substance: ALFUZOSIN
     Indication: Urinary retention
     Dosage: EVENING
     Route: 048
     Dates: start: 20250518, end: 20250528
  9. PIPERACILLIN SODIUM\TAZOBACTAM SODIUM [Concomitant]
     Active Substance: PIPERACILLIN SODIUM\TAZOBACTAM SODIUM
     Indication: Pneumonia
     Dosage: 1 VIAL AT 12AM/8AM/4PM
     Route: 042
     Dates: start: 20250521, end: 20250525
  10. VALPROATE SODIUM [Concomitant]
     Active Substance: VALPROATE SODIUM
     Indication: Epilepsy
     Dosage: 1000 MG MORNING AND EVENING
     Route: 048
     Dates: start: 20250523, end: 20250523
  11. VALPROATE SODIUM [Concomitant]
     Active Substance: VALPROATE SODIUM
     Dosage: 750 MG MORNING AND 100 MG EVENING
     Route: 048
     Dates: start: 20250523, end: 20250526
  12. VALPROATE SODIUM [Concomitant]
     Active Substance: VALPROATE SODIUM
     Dosage: 500 MG MORNING AND 100 MG EVENING
     Route: 048
     Dates: start: 20250526, end: 20250529

REACTIONS (3)
  - Renal failure [Fatal]
  - Dilated cardiomyopathy [Fatal]
  - Anticonvulsant drug level above therapeutic [Not Recovered/Not Resolved]

NARRATIVE: CASE EVENT DATE: 20250526
